FAERS Safety Report 17002985 (Version 2)
Quarter: 2020Q1

REPORT INFORMATION
  Report Type: Spontaneous
  Country: FR (occurrence: FR)
  Receive Date: 20191107
  Receipt Date: 20200123
  Transmission Date: 20200409
  Serious: Yes (Death)
  Sender: FDA-Public Use
  Company Number: FR-SUN PHARMACEUTICAL INDUSTRIES LTD-2019RR-226717

PATIENT
  Age: 83 Year
  Sex: Female

DRUGS (1)
  1. FENOFIBRATE. [Suspect]
     Active Substance: FENOFIBRATE
     Indication: PROPHYLAXIS
     Dosage: 200 MILLIGRAMS, UNK
     Route: 048

REACTIONS (2)
  - Myositis [Fatal]
  - Antibody test positive [Fatal]

NARRATIVE: CASE EVENT DATE: 201907
